FAERS Safety Report 24538674 (Version 1)
Quarter: 2024Q4

REPORT INFORMATION
  Report Type: Report from Study
  Country: US (occurrence: US)
  Receive Date: 20241023
  Receipt Date: 20241023
  Transmission Date: 20250115
  Serious: Yes (Hospitalization)
  Sender: ROCHE
  Company Number: US-ROCHE-10000107648

PATIENT
  Age: 49 Year
  Sex: Female

DRUGS (28)
  1. RITUXAN [Suspect]
     Active Substance: RITUXIMAB
     Indication: Diffuse large B-cell lymphoma
     Route: 065
  2. DIAMOX SEQUELS [Concomitant]
     Active Substance: ACETAZOLAMIDE
  3. ALBUTEROL [Concomitant]
     Active Substance: ALBUTEROL
  4. ELAVIL [Concomitant]
     Active Substance: AMITRIPTYLINE HYDROCHLORIDE
  5. ELIQUIS [Concomitant]
     Active Substance: APIXABAN
  6. ELIQUIS [Concomitant]
     Active Substance: APIXABAN
  7. ATROPINE [Concomitant]
     Active Substance: ATROPINE
  8. DULCOLAX [Concomitant]
  9. WELLBUTRIN [Concomitant]
     Active Substance: BUPROPION HYDROCHLORIDE
  10. CALCIUM CHLORIDE\SODIUM CHLORIDE\SODIUM PHOSPHATE, DIBASIC, ANHYDROUS\ [Concomitant]
     Active Substance: CALCIUM CHLORIDE\SODIUM CHLORIDE\SODIUM PHOSPHATE, DIBASIC, ANHYDROUS\SODIUM PHOSPHATE, MONOBASIC, A
  11. DECADRON [Concomitant]
     Active Substance: DEXAMETHASONE
  12. BENADRYL [Concomitant]
     Active Substance: DIPHENHYDRAMINE HYDROCHLORIDE
  13. CYMBALTA [Concomitant]
     Active Substance: DULOXETINE HYDROCHLORIDE
  14. EPIPEN [Concomitant]
     Active Substance: EPINEPHRINE
  15. EPIPEN [Concomitant]
     Active Substance: EPINEPHRINE
  16. SOLU-CORTEF [Concomitant]
     Active Substance: HYDROCORTISONE SODIUM SUCCINATE
  17. LEUCOVORIN [Concomitant]
     Active Substance: LEUCOVORIN\LEUCOVORIN CALCIUM
  18. KEPPRA [Concomitant]
     Active Substance: LEVETIRACETAM
  19. LIDOCAINE [Concomitant]
     Active Substance: LIDOCAINE
  20. PRINIVIL [Concomitant]
     Active Substance: LISINOPRIL
  21. NARCAN [Concomitant]
     Active Substance: NALOXONE HYDROCHLORIDE
  22. MIRALAX [Concomitant]
     Active Substance: POLYETHYLENE GLYCOL 3350
  23. PRED FORTE [Concomitant]
     Active Substance: PREDNISOLONE ACETATE
  24. COMPAZINE [Concomitant]
     Active Substance: PROCHLORPERAZINE MALEATE
  25. SENOKOT [Concomitant]
     Active Substance: SENNOSIDES
  26. SODIUM BICARBONATE [Concomitant]
     Active Substance: SODIUM BICARBONATE
  27. DEXTROSE [Concomitant]
     Active Substance: DEXTROSE MONOHYDRATE
  28. SODIUM CHLORIDE [Concomitant]
     Active Substance: SODIUM CHLORIDE

REACTIONS (7)
  - Encephalopathy [Unknown]
  - Hypertension [Unknown]
  - Anxiety [Unknown]
  - Depression [Unknown]
  - Physical deconditioning [Unknown]
  - Skin lesion [Unknown]
  - Deep vein thrombosis [Unknown]
